FAERS Safety Report 7280004-4 (Version None)
Quarter: 2011Q1

REPORT INFORMATION
  Report Type: 
  Country: None (occurrence: None)
  Receive Date: 20110208
  Receipt Date: 20110128
  Transmission Date: 20110831
  Serious: Yes (Life-Threatening)
  Sender: FDA-Public Use
  Company Number: CN-BRACCO-000198

PATIENT
  Age: 28 Year
  Sex: Female
  Weight: 43.5 kg

DRUGS (10)
  1. SPIRONOLACTONE [Concomitant]
     Route: 048
  2. METHYLPREDNISOLONE [Concomitant]
     Route: 041
  3. IOPAMIRO [Suspect]
     Indication: COMPUTERISED TOMOGRAM ABDOMEN
     Route: 042
     Dates: start: 20110113, end: 20110113
  4. NIFEDIPINE [Concomitant]
     Route: 048
  5. UROKINASE [Concomitant]
     Route: 042
  6. ENALAPRIL MALEATE [Concomitant]
     Route: 048
  7. IOPAMIRO [Suspect]
     Indication: ABDOMINAL DISTENSION
     Route: 042
     Dates: start: 20110113, end: 20110113
  8. VALSARTAN [Concomitant]
     Route: 048
  9. FRAXIPARINE [Concomitant]
     Route: 041
  10. LASIX [Concomitant]

REACTIONS (4)
  - LOSS OF CONSCIOUSNESS [None]
  - PUPILLARY REFLEX IMPAIRED [None]
  - PULSE ABSENT [None]
  - BLOOD PRESSURE IMMEASURABLE [None]
